FAERS Safety Report 19071634 (Version 1)
Quarter: 2021Q1

REPORT INFORMATION
  Report Type: Spontaneous
  Country: CA (occurrence: CA)
  Receive Date: 20210330
  Receipt Date: 20210330
  Transmission Date: 20210420
  Serious: Yes (Death)
  Sender: FDA-Public Use
  Company Number: CA-BAXTER-2021BAX005807

PATIENT
  Age: 28 Year
  Sex: Female

DRUGS (3)
  1. VINCRISTINE SULFATE. [Suspect]
     Active Substance: VINCRISTINE SULFATE
     Indication: NEUROENDOCRINE CARCINOMA
     Route: 042
  2. DOXIL [Suspect]
     Active Substance: DOXORUBICIN HYDROCHLORIDE
     Indication: NEUROENDOCRINE CARCINOMA
     Route: 042
  3. PROCYTOX (CYCLOPHOSPHAMIDE) 2000MG/VIAL [Suspect]
     Active Substance: CYCLOPHOSPHAMIDE
     Indication: NEUROENDOCRINE CARCINOMA
     Route: 042

REACTIONS (1)
  - Hypercalcaemia [Fatal]
